FAERS Safety Report 11054577 (Version 1)
Quarter: 2015Q2

REPORT INFORMATION
  Report Type: Spontaneous
  Country: US (occurrence: None)
  Receive Date: 20150421
  Receipt Date: 20150421
  Transmission Date: 20150821
  Serious: Yes (Life-Threatening, Hospitalization, Disabling)
  Sender: FDA-Public Use
  Company Number: None

PATIENT
  Age: 87 Year
  Sex: Male
  Weight: 68.04 kg

DRUGS (5)
  1. TORSEMIDE. [Concomitant]
     Active Substance: TORSEMIDE
  2. VALSARTIN [Concomitant]
  3. AMLODIPINE [Concomitant]
     Active Substance: AMLODIPINE BESYLATE
  4. METROPOLOL [Concomitant]
     Active Substance: METOPROLOL
  5. RISPERIDONE. [Suspect]
     Active Substance: RISPERIDONE
     Indication: VASCULAR DEMENTIA
     Dosage: .25 MG. 5 TIMES A DAY BY MOUTH.
     Route: 048
     Dates: start: 20150321, end: 20150330

REACTIONS (4)
  - Tremor [None]
  - Gait disturbance [None]
  - Activities of daily living impaired [None]
  - Hypersomnia [None]

NARRATIVE: CASE EVENT DATE: 20150321
